FAERS Safety Report 6165066-X (Version None)
Quarter: 2009Q2

REPORT INFORMATION
  Report Type: 
  Country: None (occurrence: None)
  Receive Date: 20090423
  Receipt Date: 20090414
  Transmission Date: 20091009
  Serious: Yes (Hospitalization)
  Sender: FDA-Public Use
  Company Number: UA-AVENTIS-200914005GDDC

PATIENT
  Age: 60 Year
  Sex: Female

DRUGS (2)
  1. LANTUS [Suspect]
     Indication: TYPE 2 DIABETES MELLITUS
     Route: 058
     Dates: start: 20070704
  2. OPTIPEN (INSULIN PUMP) [Suspect]
     Dates: start: 20070704

REACTIONS (3)
  - CATARACT [None]
  - DIABETIC RETINOPATHY [None]
  - NEOPLASM SKIN [None]
